FAERS Safety Report 5669761-8 (Version None)
Quarter: 2008Q1

REPORT INFORMATION
  Report Type: 
  Country: None (occurrence: None)
  Receive Date: 20080317
  Receipt Date: 20080306
  Transmission Date: 20080703
  Serious: Yes (Other)
  Sender: FDA-Public Use
  Company Number: AU-SANOFI-SYNTHELABO-A01200802734

PATIENT
  Sex: Male

DRUGS (3)
  1. LUVOX [Concomitant]
     Indication: DRUG USE FOR UNKNOWN INDICATION
  2. EFFEXOR [Concomitant]
     Indication: DRUG USE FOR UNKNOWN INDICATION
  3. STILNOX [Suspect]
     Indication: DRUG USE FOR UNKNOWN INDICATION

REACTIONS (26)
  - ABNORMAL DREAMS [None]
  - AKATHISIA [None]
  - ANGER [None]
  - ANXIETY [None]
  - CHEST PAIN [None]
  - DEPRESSION [None]
  - DISTURBANCE IN ATTENTION [None]
  - DRUG TOXICITY [None]
  - EPILEPSY [None]
  - EUPHORIC MOOD [None]
  - FATIGUE [None]
  - HALLUCINATIONS, MIXED [None]
  - HOSTILITY [None]
  - HYPERTENSION [None]
  - IRRITABILITY [None]
  - MEMORY IMPAIRMENT [None]
  - PALPITATIONS [None]
  - PANIC DISORDER [None]
  - PARANOIA [None]
  - POISONING [None]
  - RESPIRATORY DISORDER [None]
  - SEROTONIN SYNDROME [None]
  - SLEEP DISORDER [None]
  - SLEEP PHASE RHYTHM DISTURBANCE [None]
  - SUICIDE ATTEMPT [None]
  - VISUAL DISTURBANCE [None]
